FAERS Safety Report 4339786-3 (Version None)
Quarter: 2004Q2

REPORT INFORMATION
  Report Type: 
  Country: None (occurrence: None)
  Receive Date: 20040416
  Receipt Date: 20040406
  Transmission Date: 20050107
  Serious: Yes (Life-Threatening)
  Sender: FDA-Public Use
  Company Number: FR-BRISTOL-MYERS SQUIBB COMPANY-12558987

PATIENT
  Sex: Female

DRUGS (2)
  1. ERBITUX [Suspect]
     Indication: COLORECTAL CANCER
     Route: 041
     Dates: start: 20040330, end: 20040330
  2. CAMPTOSAR [Suspect]
     Indication: COLORECTAL CANCER
     Route: 041
     Dates: start: 20040330, end: 20040330

REACTIONS (1)
  - APLASIA [None]
